FAERS Safety Report 26044012 (Version 1)
Quarter: 2025Q4

REPORT INFORMATION
  Report Type: Spontaneous
  Country: AU (occurrence: AU)
  Receive Date: 20251114
  Receipt Date: 20251114
  Transmission Date: 20260118
  Serious: No
  Sender: ALKEM
  Company Number: AU-ALKEM LABORATORIES LIMITED-AU-ALKEM-2025-09781

PATIENT
  Age: 70 Year
  Sex: Female
  Weight: 59 kg

DRUGS (7)
  1. MYCOPHENOLIC ACID (MYCOPHENOLATE SODIUM) [Suspect]
     Active Substance: MYCOPHENOLATE SODIUM
     Indication: Lung disorder
     Dosage: 1440 MILLIGRAM, QD (DAILY)
     Route: 065
     Dates: start: 202504, end: 20250823
  2. MYCOPHENOLIC ACID (MYCOPHENOLATE SODIUM) [Suspect]
     Active Substance: MYCOPHENOLATE SODIUM
     Dosage: 1440 MILLIGRAM (DAILY)
     Route: 065
     Dates: start: 20250829
  3. NEXIUM [Concomitant]
     Active Substance: ESOMEPRAZOLE MAGNESIUM
     Indication: Product used for unknown indication
     Dosage: UNK
     Route: 065
  4. MAGNESIUM [Concomitant]
     Active Substance: MAGNESIUM
     Indication: Product used for unknown indication
     Dosage: UNK
     Route: 065
  5. Vitamin D supplements [Concomitant]
     Indication: Product used for unknown indication
     Dosage: UNK
     Route: 065
  6. Ezemichol [Concomitant]
     Indication: Product used for unknown indication
     Dosage: UNK
     Route: 065
  7. EZETIMIBE [Concomitant]
     Active Substance: EZETIMIBE
     Indication: Blood cholesterol increased
     Dosage: UNK, ONCE (AT NIGHT)
     Route: 065

REACTIONS (1)
  - Diarrhoea [Not Recovered/Not Resolved]

NARRATIVE: CASE EVENT DATE: 20250814
